FAERS Safety Report 9090594 (Version 1)
Quarter: 2013Q1

REPORT INFORMATION
  Report Type: Report from Study
  Country: US (occurrence: US)
  Receive Date: 20130131
  Receipt Date: 20130131
  Transmission Date: 20140127
  Serious: No
  Sender: FDA-Public Use
  Company Number: US-ABBOTT-12P-163-0990524-00

PATIENT
  Sex: Male

DRUGS (10)
  1. HUMIRA [Suspect]
     Indication: PSORIATIC ARTHROPATHY
     Dosage: PEN
     Dates: start: 20120622, end: 201209
  2. HUMIRA [Suspect]
     Dates: start: 20120929
  3. METHOTREXATE [Concomitant]
     Indication: PSORIATIC ARTHROPATHY
  4. METHOTREXATE [Concomitant]
     Indication: PSORIASIS
  5. ASPIRIN [Concomitant]
     Indication: PROPHYLAXIS
  6. FOLIC ACID [Concomitant]
     Indication: VITAMIN SUPPLEMENTATION
  7. GLYBURIDE [Concomitant]
     Indication: DIABETES MELLITUS
     Dosage: BID DAILY AS NEEDED
  8. GLYBURIDE [Concomitant]
     Dosage: BID DAILY AS NEEDED
  9. METFORMIN [Concomitant]
     Indication: DIABETES MELLITUS
     Dosage: BID DAILY AS NEEDED
  10. ENALAPRIL [Concomitant]
     Dosage: DAILY AS NEEDED

REACTIONS (6)
  - Blood glucose abnormal [Unknown]
  - Muscle spasms [Not Recovered/Not Resolved]
  - Joint swelling [Not Recovered/Not Resolved]
  - Psoriasis [Not Recovered/Not Resolved]
  - Syncope [Unknown]
  - Dizziness [Unknown]
